FAERS Safety Report 7270836-0 (Version None)
Quarter: 2011Q1

REPORT INFORMATION
  Report Type: 
  Country: None (occurrence: None)
  Receive Date: 20110202
  Receipt Date: 20110118
  Transmission Date: 20110831
  Serious: Yes (Hospitalization)
  Sender: FDA-Public Use
  Company Number: FR-CELGENEUS-056-C5013-11010296

PATIENT
  Sex: Male
  Weight: 79 kg

DRUGS (23)
  1. PRAVASTATIN [Concomitant]
     Route: 048
     Dates: start: 19900101
  2. CACIT D3 [Concomitant]
     Indication: OSTEOPOROSIS PROPHYLAXIS
     Route: 048
     Dates: start: 19900101
  3. TOPLEXIL [Concomitant]
     Indication: COUGH
     Route: 048
     Dates: start: 20101025
  4. EFFERALGAN CODEINE [Concomitant]
     Route: 048
     Dates: start: 20100917
  5. PLAVIX [Concomitant]
     Indication: ARTERITIS
     Route: 048
     Dates: start: 19900101
  6. GLIBENCLAMIDE [Concomitant]
     Route: 048
     Dates: start: 20101105
  7. CC-5013\PLACEBO [Suspect]
     Indication: PROSTATE CANCER
     Route: 048
     Dates: start: 20101012
  8. CC-5013\PLACEBO [Suspect]
     Route: 048
     Dates: start: 20101214, end: 20110104
  9. PREDNISONE [Suspect]
     Indication: PROSTATE CANCER
     Route: 065
     Dates: start: 20101012
  10. BRICANYL [Concomitant]
     Indication: COUGH
     Route: 055
     Dates: start: 20101025
  11. PREVISCAN [Concomitant]
     Indication: ATRIAL FLUTTER
     Route: 048
     Dates: start: 20101102
  12. EPREX [Concomitant]
     Route: 058
     Dates: start: 20101214
  13. AUGMENTIN '125' [Concomitant]
     Indication: LUNG INFECTION
     Route: 048
     Dates: start: 20101220, end: 20101227
  14. FORLAX [Concomitant]
     Indication: CONSTIPATION
     Route: 048
     Dates: start: 20100920
  15. CARDENSIEL [Concomitant]
     Indication: ATRIAL FLUTTER
     Route: 048
     Dates: start: 20101102
  16. PREDNISONE [Suspect]
     Route: 065
     Dates: start: 20101214, end: 20110104
  17. TRIATEC [Concomitant]
     Route: 048
     Dates: start: 19900101
  18. DOCETAXEL [Suspect]
     Route: 065
     Dates: start: 20101214, end: 20110104
  19. AUGMENTIN '125' [Concomitant]
     Indication: NEUTROPENIA
  20. DOCETAXEL [Suspect]
     Indication: PROSTATE CANCER
     Route: 065
     Dates: start: 20101012
  21. METFORMIN [Concomitant]
     Route: 048
     Dates: start: 19900101
  22. LOVENOX [Concomitant]
     Indication: ATRIAL FLUTTER
     Route: 058
     Dates: start: 20101103
  23. LASIX [Concomitant]
     Route: 048
     Dates: start: 20101102

REACTIONS (2)
  - HYPERGLYCAEMIA [None]
  - PERFORMANCE STATUS DECREASED [None]
